FAERS Safety Report 19712363 (Version 1)
Quarter: 2021Q3

REPORT INFORMATION
  Report Type: Report from Study
  Country: US (occurrence: US)
  Receive Date: 20210816
  Receipt Date: 20210816
  Transmission Date: 20211014
  Serious: No
  Sender: FDA-Public Use
  Company Number: US-SUNOVION-2018SUN005189

PATIENT

DRUGS (2)
  1. LATUDA [Suspect]
     Active Substance: LURASIDONE HYDROCHLORIDE
     Dosage: 20 MG
  2. SEROQUEL XR [Suspect]
     Active Substance: QUETIAPINE FUMARATE

REACTIONS (2)
  - Headache [Unknown]
  - Dyspnoea [Unknown]
